FAERS Safety Report 7979003-6 (Version None)
Quarter: 2011Q4

REPORT INFORMATION
  Report Type: 
  Country: None (occurrence: None)
  Receive Date: 20111214
  Receipt Date: 20111205
  Transmission Date: 20120403
  Serious: Yes (Other)
  Sender: FDA-Public Use
  Company Number: US-BAYER-2011-081077

PATIENT
  Age: 37 Year
  Sex: Female

DRUGS (1)
  1. MIRENA [Suspect]
     Indication: CONTRACEPTION
     Dosage: 20 MCG/24HR, CONT
     Route: 015
     Dates: start: 20110614, end: 20110818

REACTIONS (8)
  - ABDOMINAL PAIN LOWER [None]
  - WEIGHT INCREASED [None]
  - PAIN [None]
  - DYSPAREUNIA [None]
  - HEADACHE [None]
  - ABDOMINAL DISTENSION [None]
  - DEVICE EXPULSION [None]
  - VAGINAL HAEMORRHAGE [None]
